FAERS Safety Report 6690667-X (Version None)
Quarter: 2010Q2

REPORT INFORMATION
  Report Type: 
  Country: None (occurrence: None)
  Receive Date: 20100421
  Receipt Date: 20090424
  Transmission Date: 20101027
  Serious: Yes (Other)
  Sender: FDA-Public Use
  Company Number: US-BRISTOL-MYERS SQUIBB COMPANY-14600472

PATIENT
  Age: 6 Decade
  Sex: Male
  Weight: 91 kg

DRUGS (8)
  1. HYDREA [Suspect]
     Indication: POLYCYTHAEMIA VERA
     Dosage: STARTED TEN YEARS AGO
  2. TOPROL-XL [Concomitant]
  3. VIAGRA [Concomitant]
  4. ZYLOPRIM [Concomitant]
  5. FLOMAX [Concomitant]
  6. LANOXIN [Concomitant]
  7. RESTORIL [Concomitant]
  8. SYNTHROID [Concomitant]

REACTIONS (1)
  - NEUROPATHY PERIPHERAL [None]
